FAERS Safety Report 26126075 (Version 1)
Quarter: 2025Q4

REPORT INFORMATION
  Report Type: Report from Study
  Country: US (occurrence: US)
  Receive Date: 20251205
  Receipt Date: 20251205
  Transmission Date: 20260118
  Serious: Yes (Hospitalization, Other)
  Sender: TAIHO ONCOLOGY INC
  Company Number: US-TAIHOP-2025-004474

PATIENT
  Age: 81 Year
  Sex: Male

DRUGS (19)
  1. LONSURF [Suspect]
     Active Substance: TIPIRACIL HYDROCHLORIDE\TRIFLURIDINE
     Indication: Rectal cancer
     Dosage: ON DAYS 1-5 AND 8-12 OF EACH 28 DAY CYCLE?CYCLE UNKNOWN.
     Route: 048
     Dates: start: 20241127
  2. CIPROFLOXACIN [Concomitant]
     Active Substance: CIPROFLOXACIN
     Indication: Product used for unknown indication
  3. DOXYCYCLINE HYCLATE [Concomitant]
     Active Substance: DOXYCYCLINE HYCLATE
     Indication: Product used for unknown indication
  4. ERYTHROMYCIN [Concomitant]
     Active Substance: ERYTHROMYCIN
     Indication: Product used for unknown indication
  5. FERROUS GLUC [Concomitant]
     Indication: Product used for unknown indication
  6. FERROUS SULFATE [Concomitant]
     Active Substance: FERROUS SULFATE
     Indication: Product used for unknown indication
  7. A-HYDROCORT [Concomitant]
     Active Substance: HYDROCORTISONE SODIUM SUCCINATE
     Indication: Product used for unknown indication
     Dosage: CREAM
  8. LOMOTIL [Concomitant]
     Active Substance: ATROPINE SULFATE\DIPHENOXYLATE HYDROCHLORIDE
     Indication: Product used for unknown indication
  9. LOPERAMIDE [Concomitant]
     Active Substance: LOPERAMIDE
     Indication: Product used for unknown indication
  10. MEGESTROL AC [Concomitant]
     Indication: Product used for unknown indication
     Dosage: SUS
  11. METFORMIN [Concomitant]
     Active Substance: METFORMIN HYDROCHLORIDE
     Indication: Product used for unknown indication
  12. METOPROLOL TARTRATE [Concomitant]
     Active Substance: METOPROLOL TARTRATE
     Indication: Product used for unknown indication
  13. MVASI [Concomitant]
     Active Substance: BEVACIZUMAB-AWWB
     Indication: Product used for unknown indication
  14. POLYMYXIN B/ SOL TRIMETHP [Concomitant]
     Indication: Product used for unknown indication
  15. PYRIDIUM [Concomitant]
     Active Substance: PHENAZOPYRIDINE
     Indication: Product used for unknown indication
  16. VITAMIN C [Concomitant]
     Active Substance: ASCORBIC ACID
     Indication: Product used for unknown indication
  17. ZYVOX [Concomitant]
     Active Substance: LINEZOLID
     Indication: Product used for unknown indication
  18. ELIQUIS [Concomitant]
     Active Substance: APIXABAN
     Indication: Product used for unknown indication
  19. LASIX [Concomitant]
     Active Substance: FUROSEMIDE
     Indication: Product used for unknown indication

REACTIONS (10)
  - Cardiac failure congestive [Not Recovered/Not Resolved]
  - Ureteric obstruction [Unknown]
  - Urinary tract infection [Unknown]
  - Vertigo [Unknown]
  - Penile pain [Unknown]
  - Pain [Unknown]
  - Dizziness postural [Unknown]
  - Arthralgia [Unknown]
  - Asthenia [Unknown]
  - Confusional state [Unknown]

NARRATIVE: CASE EVENT DATE: 20250401
